FAERS Safety Report 9693176 (Version 1)
Quarter: 2013Q4

REPORT INFORMATION
  Report Type: Spontaneous
  Country: GB (occurrence: None)
  Receive Date: 20131114
  Receipt Date: 20131114
  Transmission Date: 20140711
  Serious: Yes (Other)
  Sender: FDA-Public Use
  Company Number: AUR-APL-2013-09406

PATIENT
  Age: 75 Year
  Sex: Male

DRUGS (2)
  1. BISOPROLOL [Suspect]
     Indication: HYPERTENSION
     Dosage: 5 MG (5 MG, 1 IN 1 D) ORAL
     Dates: start: 20131020
  2. VALERIAN [Suspect]
     Indication: INSOMNIA
     Dosage: ORAL
     Dates: start: 20131020

REACTIONS (3)
  - Anxiety [None]
  - Dyspnoea [None]
  - Drug interaction [None]
